FAERS Safety Report 7102957-7 (Version None)
Quarter: 2010Q4

REPORT INFORMATION
  Report Type: 
  Country: None (occurrence: None)
  Receive Date: 20101115
  Receipt Date: 20101109
  Transmission Date: 20110411
  Serious: No
  Sender: FDA-Public Use
  Company Number: US-PFIZER INC-2010144086

PATIENT
  Sex: Male
  Weight: 150 kg

DRUGS (5)
  1. TIKOSYN [Suspect]
     Indication: DEVICE MALFUNCTION
     Dosage: 0.5 MG, 2X/DAY
     Route: 048
     Dates: start: 20101106
  2. CARVEDILOL [Concomitant]
     Dosage: 25 MG, 2X/DAY
  3. DIGOXIN [Concomitant]
     Dosage: 0.25 MG, UNK
  4. XANAX [Concomitant]
     Dosage: 0.5 MG, UNK
  5. WARFARIN [Concomitant]
     Dosage: 5 MG, DAILY

REACTIONS (2)
  - ARTHRALGIA [None]
  - DIZZINESS [None]
